FAERS Safety Report 7338946-7 (Version None)
Quarter: 2011Q1

REPORT INFORMATION
  Report Type: 
  Country: None (occurrence: None)
  Receive Date: 20110308
  Receipt Date: 20110303
  Transmission Date: 20110831
  Serious: Yes (Hospitalization, Other)
  Sender: FDA-Public Use
  Company Number: GB-ABBOTT-10P-167-0621436-00

PATIENT
  Sex: Female

DRUGS (9)
  1. HUMIRA [Suspect]
     Indication: RHEUMATOID ARTHRITIS
     Route: 058
     Dates: start: 20070701, end: 20090601
  2. HYDROXYCHLOROQUINE [Concomitant]
     Indication: PRODUCT USED FOR UNKNOWN INDICATION
  3. FOLIC ACID [Concomitant]
     Indication: PRODUCT USED FOR UNKNOWN INDICATION
     Dates: start: 20070706
  4. OMEPRAZOLE [Concomitant]
     Indication: PRODUCT USED FOR UNKNOWN INDICATION
     Dates: start: 20070706
  5. METHOTREXATE [Concomitant]
     Dosage: WITHHELD DURING SURGERY
     Dates: start: 20101201
  6. CO-DYDRAMOL [Concomitant]
     Indication: PRODUCT USED FOR UNKNOWN INDICATION
     Dates: start: 20070706
  7. MELOXICAM [Concomitant]
     Indication: PRODUCT USED FOR UNKNOWN INDICATION
     Dates: start: 20070706
  8. IMURAN [Concomitant]
     Indication: PRODUCT USED FOR UNKNOWN INDICATION
     Dosage: WITHHELD DURING SURGERY
  9. METHOTREXATE [Concomitant]
     Indication: PRODUCT USED FOR UNKNOWN INDICATION

REACTIONS (8)
  - LOWER RESPIRATORY TRACT INFECTION [None]
  - DIAPHRAGMATIC RUPTURE [None]
  - POSTOPERATIVE WOUND INFECTION [None]
  - DIAPHRAGMATIC HERNIA [None]
  - INTESTINAL PERFORATION [None]
  - ABDOMINAL PAIN [None]
  - FALL [None]
  - VOMITING [None]
